FAERS Safety Report 20893419 (Version 1)
Quarter: 2022Q2

REPORT INFORMATION
  Report Type: Spontaneous
  Country: US (occurrence: US)
  Receive Date: 20220531
  Receipt Date: 20220531
  Transmission Date: 20220721
  Serious: No
  Sender: FDA-Public Use
  Company Number: US-ORGANON-O2205USA002417

PATIENT
  Sex: Female

DRUGS (1)
  1. NEXPLANON [Suspect]
     Active Substance: ETONOGESTREL
     Indication: Contraception
     Dosage: 1 ROD OF 68 MG
     Route: 059
     Dates: start: 20220301

REACTIONS (2)
  - Menometrorrhagia [Not Recovered/Not Resolved]
  - Implant site pain [Unknown]

NARRATIVE: CASE EVENT DATE: 20220101
